FAERS Safety Report 6279740-8 (Version None)
Quarter: 2009Q3

REPORT INFORMATION
  Report Type: 
  Country: None (occurrence: None)
  Receive Date: 20090723
  Receipt Date: 20090715
  Transmission Date: 20100115
  Serious: Yes (Hospitalization)
  Sender: FDA-Public Use
  Company Number: US-JNJFOC-20090400894

PATIENT
  Sex: Female
  Weight: 44.86 kg

DRUGS (4)
  1. REMICADE [Suspect]
     Indication: INFLAMMATORY BOWEL DISEASE
     Route: 042
  2. 5-ASA [Concomitant]
     Dosage: ADMINISTERED BOTH AS ORAL AND RECTAL PREPARATION
     Route: 048
  3. PREDNISONE TAB [Concomitant]
  4. 5-ASA [Concomitant]
     Route: 054

REACTIONS (2)
  - CROHN'S DISEASE [None]
  - SMALL INTESTINAL OBSTRUCTION [None]
